FAERS Safety Report 22639087 (Version 1)
Quarter: 2023Q2

REPORT INFORMATION
  Report Type: Spontaneous
  Country: US (occurrence: None)
  Receive Date: 20230623
  Receipt Date: 20230623
  Transmission Date: 20230722
  Serious: Yes (Other)
  Sender: FDA-Public Use
  Company Number: None

PATIENT
  Age: 37 Year
  Sex: Female
  Weight: 99 kg

DRUGS (10)
  1. PYRIDOXINE\SEMAGLUTIDE [Suspect]
     Active Substance: PYRIDOXINE\SEMAGLUTIDE
     Indication: Weight decreased
     Dosage: ONCE A WEEK INJECTION INTO SKIN
     Route: 050
     Dates: start: 20230618, end: 20230618
  2. dualoxatine [Concomitant]
  3. LOSARTAN [Concomitant]
  4. TOPIRAMATE [Concomitant]
     Active Substance: TOPIRAMATE
  5. OMEPRAZOLE [Concomitant]
     Active Substance: OMEPRAZOLE
  6. VITAMIN D [Concomitant]
     Active Substance: VITAMIN D NOS
  7. VITAMIN B12 [Concomitant]
     Active Substance: CYANOCOBALAMIN
  8. VITAMINS [Concomitant]
     Active Substance: VITAMINS
  9. PROBIOTICS NOS [Concomitant]
     Active Substance: PROBIOTICS NOS
  10. IRON [Concomitant]
     Active Substance: IRON

REACTIONS (6)
  - Middle insomnia [None]
  - Abdominal pain lower [None]
  - Faeces hard [None]
  - Faeces discoloured [None]
  - Diarrhoea [None]
  - Eating disorder [None]

NARRATIVE: CASE EVENT DATE: 20230619
